FAERS Safety Report 10505247 (Version 1)
Quarter: 2014Q4

REPORT INFORMATION
  Report Type: Spontaneous
  Country: US (occurrence: US)
  Receive Date: 20141008
  Receipt Date: 20141008
  Transmission Date: 20150528
  Serious: No
  Sender: FDA-Public Use
  Company Number: US-PFIZER INC-2014272548

PATIENT
  Sex: Male

DRUGS (1)
  1. ADVIL [Suspect]
     Active Substance: IBUPROFEN
     Indication: BONE DISORDER
     Dosage: UNK
     Dates: start: 2006

REACTIONS (2)
  - Intentional product misuse [Unknown]
  - Malaise [Unknown]
